FAERS Safety Report 19101682 (Version 1)
Quarter: 2021Q2

REPORT INFORMATION
  Report Type: Spontaneous
  Country: US (occurrence: US)
  Receive Date: 20210407
  Receipt Date: 20210407
  Transmission Date: 20210717
  Serious: Yes (Other)
  Sender: FDA-Public Use
  Company Number: US-ASTRAZENECA-2021A261685

PATIENT
  Sex: Male
  Weight: 77.1 kg

DRUGS (2)
  1. IMMUNOGLOBULIN INFUSION [Concomitant]
  2. CALQUENCE [Suspect]
     Active Substance: ACALABRUTINIB
     Indication: MANTLE CELL LYMPHOMA RECURRENT
     Route: 048
     Dates: start: 202009

REACTIONS (1)
  - Blood pressure abnormal [Unknown]
